FAERS Safety Report 9645120 (Version 1)
Quarter: 2013Q4

REPORT INFORMATION
  Report Type: Spontaneous
  Country: US (occurrence: None)
  Receive Date: 20131023
  Receipt Date: 20131023
  Transmission Date: 20140711
  Serious: Yes (Other)
  Sender: FDA-Public Use
  Company Number: None

PATIENT
  Age: 62 Year
  Sex: Female
  Weight: 72.58 kg

DRUGS (5)
  1. LAMOTRIGINE [Suspect]
     Indication: BIPOLAR II DISORDER
     Dosage: LAMIECTAL STARTED 2/09, H.200-7 100 M 293
     Dates: start: 200902
  2. LAMOTRIGINE [Suspect]
     Indication: CONVULSION
     Dosage: LAMIECTAL STARTED 2/09, H.200-7 100 M 293
     Dates: start: 200902
  3. ABILIFY [Concomitant]
  4. CITALOPRAM [Concomitant]
  5. ADDERALL [Concomitant]

REACTIONS (2)
  - Alopecia [None]
  - Product label issue [None]
